FAERS Safety Report 6836886-0 (Version None)
Quarter: 2010Q3

REPORT INFORMATION
  Report Type: 
  Country: None (occurrence: None)
  Receive Date: 20100713
  Receipt Date: 20070501
  Transmission Date: 20110219
  Serious: No
  Sender: FDA-Public Use
  Company Number: US-PFIZER INC-2007036132

PATIENT
  Sex: Female
  Weight: 54.5 kg

DRUGS (6)
  1. CHANTIX [Suspect]
     Indication: SMOKING CESSATION THERAPY
     Route: 048
     Dates: start: 20070427
  2. NORCO [Concomitant]
     Route: 048
  3. PROZAC [Concomitant]
     Route: 048
  4. SOMA [Concomitant]
     Route: 048
  5. CORTICOSTEROIDS [Concomitant]
     Route: 055
  6. ALBUTEROL [Concomitant]
     Route: 055

REACTIONS (2)
  - FATIGUE [None]
  - NAUSEA [None]
